FAERS Safety Report 5773144-X (Version None)
Quarter: 2008Q2

REPORT INFORMATION
  Report Type: 
  Country: None (occurrence: None)
  Receive Date: 20080615
  Receipt Date: 20080325
  Transmission Date: 20081010
  Serious: No
  Sender: FDA-Public Use
  Company Number: US-BAYER-200811323BCC

PATIENT
  Age: 71 Year
  Sex: Female

DRUGS (4)
  1. ALEVE (CAPLET) [Suspect]
     Indication: ARTHRALGIA
     Dosage: AS USED: 220 MG  UNIT DOSE: 220 MG
     Route: 048
     Dates: start: 20080324
  2. ASPIRIN [Concomitant]
  3. VYTORIN [Concomitant]
  4. FOSAMAX [Concomitant]
     Indication: PROPHYLAXIS

REACTIONS (1)
  - ARTHRALGIA [None]
